FAERS Safety Report 11121853 (Version 1)
Quarter: 2015Q2

REPORT INFORMATION
  Report Type: Spontaneous
  Country: US (occurrence: US)
  Receive Date: 20150519
  Receipt Date: 20150519
  Transmission Date: 20150821
  Serious: No
  Sender: FDA-Public Use
  Company Number: US-BAUSCH-BL-2014-002264

PATIENT
  Sex: Female

DRUGS (3)
  1. IRBESARTAN. [Concomitant]
     Active Substance: IRBESARTAN
     Indication: PRODUCT USED FOR UNKNOWN INDICATION
     Dosage: ONCE DAILY
  2. SYNTHROID [Concomitant]
     Active Substance: LEVOTHYROXINE SODIUM
     Indication: PRODUCT USED FOR UNKNOWN INDICATION
  3. IPRATROPIUM BROMIDE NASAL SOLUTION 0.06% [Suspect]
     Active Substance: IPRATROPIUM BROMIDE
     Indication: COUGH
     Dosage: SPRAY TWICE TO THREE TIMES DAILY
     Route: 045
     Dates: start: 20140430, end: 20140501

REACTIONS (4)
  - Dysgeusia [Recovering/Resolving]
  - Sinusitis [Recovering/Resolving]
  - Nasal dryness [Recovering/Resolving]
  - Rhinalgia [Recovering/Resolving]

NARRATIVE: CASE EVENT DATE: 20140430
